FAERS Safety Report 16544757 (Version 1)
Quarter: 2019Q3

REPORT INFORMATION
  Report Type: Spontaneous
  Country: US (occurrence: US)
  Receive Date: 20190708
  Receipt Date: 20190708
  Transmission Date: 20191004
  Serious: Yes (Other)
  Sender: FDA-Public Use
  Company Number: None

PATIENT
  Age: 57 Year
  Sex: Female
  Weight: 82.35 kg

DRUGS (8)
  1. BALSALAZIDE [Suspect]
     Active Substance: BALSALAZIDE
     Dosage: ?          QUANTITY:3 CAPSULE(S);?
     Dates: start: 20190618, end: 20190619
  2. WELLBUTRIN [Concomitant]
     Active Substance: BUPROPION HYDROCHLORIDE
  3. SIMVASTATIN. [Concomitant]
     Active Substance: SIMVASTATIN
  4. VITAMIN D [Concomitant]
     Active Substance: VITAMIN D NOS
  5. KLOR-CON [Concomitant]
     Active Substance: POTASSIUM CHLORIDE
  6. VITAMIN B12 [Concomitant]
     Active Substance: CYANOCOBALAMIN
  7. MULTIVITAMIN [Concomitant]
     Active Substance: VITAMINS
  8. HYDROCLORATHORIZIDE [Concomitant]

REACTIONS (3)
  - Chest pain [None]
  - Burning sensation [None]
  - Dyspnoea [None]

NARRATIVE: CASE EVENT DATE: 20190618
